FAERS Safety Report 19159557 (Version 1)
Quarter: 2021Q2

REPORT INFORMATION
  Report Type: Spontaneous
  Country: US (occurrence: US)
  Receive Date: 20210420
  Receipt Date: 20210420
  Transmission Date: 20210717
  Serious: Yes (Other)
  Sender: FDA-Public Use
  Company Number: US-GLAXOSMITHKLINE-USCH2021020513

PATIENT
  Age: 58 Year
  Sex: Male

DRUGS (1)
  1. SENSODYNE PRONAMEL INTENSIVE ENAMEL REPAIR WHITENING [Suspect]
     Active Substance: POTASSIUM NITRATE\SODIUM FLUORIDE
     Indication: DENTAL CLEANING
     Dates: start: 20210315, end: 20210415

REACTIONS (4)
  - Hypersensitivity [Unknown]
  - Tooth extraction [Unknown]
  - Leukoplakia oral [Unknown]
  - Salivary hypersecretion [Unknown]

NARRATIVE: CASE EVENT DATE: 20210405
